FAERS Safety Report 16736096 (Version 1)
Quarter: 2019Q3

REPORT INFORMATION
  Report Type: Spontaneous
  Country: IN (occurrence: IN)
  Receive Date: 20190823
  Receipt Date: 20190823
  Transmission Date: 20191005
  Serious: Yes (Death)
  Sender: FDA-Public Use
  Company Number: IN-PFIZER INC-2019361749

PATIENT
  Age: 54 Year
  Sex: Female

DRUGS (2)
  1. CAMPTO [Suspect]
     Active Substance: IRINOTECAN
     Dosage: UNK
     Route: 042
  2. CAMPTO [Suspect]
     Active Substance: IRINOTECAN
     Indication: COLORECTAL CANCER METASTATIC
     Dosage: 140
     Route: 042
     Dates: start: 20190706

REACTIONS (2)
  - Product use issue [Unknown]
  - Death [Fatal]
